FAERS Safety Report 9201046 (Version 2)
Quarter: 2013Q2

REPORT INFORMATION
  Report Type: Report from Study
  Country: CA (occurrence: CA)
  Receive Date: 20130401
  Receipt Date: 20130419
  Transmission Date: 20140414
  Serious: Yes (Hospitalization)
  Sender: FDA-Public Use
  Company Number: CA-JNJFOC-20121016569

PATIENT
  Age: 43 Year
  Sex: Female
  Weight: 67 kg

DRUGS (8)
  1. REMICADE [Suspect]
     Indication: CROHN^S DISEASE
     Route: 042
     Dates: start: 20130206
  2. REMICADE [Suspect]
     Indication: CROHN^S DISEASE
     Dosage: AT WEEK 0 IN HOSPITAL
     Route: 042
     Dates: start: 20081215
  3. REMICADE [Suspect]
     Indication: CROHN^S DISEASE
     Route: 042
     Dates: start: 20081024, end: 20130322
  4. PREDNISONE [Concomitant]
     Route: 065
  5. TYLENOL EXTRA STRENGTH [Concomitant]
     Route: 065
  6. MULTIVITAMINS [Concomitant]
     Route: 065
  7. FOLIC ACID [Concomitant]
     Route: 065
  8. TYLENOL [Concomitant]
     Route: 065

REACTIONS (4)
  - Pre-eclampsia [Recovering/Resolving]
  - HELLP syndrome [Recovering/Resolving]
  - Exposure during pregnancy [Recovered/Resolved]
  - Premature delivery [Recovered/Resolved]
